FAERS Safety Report 9843728 (Version 1)
Quarter: 2014Q1

REPORT INFORMATION
  Report Type: Spontaneous
  Country: US (occurrence: US)
  Receive Date: 20140126
  Receipt Date: 20140126
  Transmission Date: 20141002
  Serious: No
  Sender: FDA-Public Use
  Company Number: US-009507513-1401USA005754

PATIENT
  Sex: Female

DRUGS (5)
  1. SAPHRIS [Suspect]
     Indication: BIPOLAR DISORDER
     Dosage: 5 MG, BID
     Route: 060
     Dates: start: 201310, end: 20140106
  2. IBUPROFEN [Concomitant]
     Dosage: 300 MG, BID
  3. SIMVASTATIN [Concomitant]
     Route: 048
  4. AMLODIPINE [Concomitant]
  5. SYNTHROID [Concomitant]

REACTIONS (9)
  - Feeling abnormal [Recovering/Resolving]
  - Gastric disorder [Recovering/Resolving]
  - Weight increased [Recovering/Resolving]
  - Increased appetite [Recovering/Resolving]
  - Agitation [Recovering/Resolving]
  - Insomnia [Recovering/Resolving]
  - Gastroenteritis viral [Recovering/Resolving]
  - Mental disorder [Unknown]
  - Adverse reaction [Unknown]
